FAERS Safety Report 11543352 (Version 3)
Quarter: 2016Q4

REPORT INFORMATION
  Report Type: Report from Study
  Country: BR (occurrence: BR)
  Receive Date: 20150923
  Receipt Date: 20161019
  Transmission Date: 20170206
  Serious: Yes (Death, Other)
  Sender: FDA-Public Use
  Company Number: PHHY2015BR113801

PATIENT
  Sex: Female
  Weight: 85 kg

DRUGS (3)
  1. DIOVAN HCT [Suspect]
     Active Substance: HYDROCHLOROTHIAZIDE\VALSARTAN
     Indication: HYPERTENSION
     Dosage: 1 DF (VALSARTAN 320 MG, HYDROCHLOROTHIAZIDE 12.5 MG), QD
     Route: 065
     Dates: end: 20150903
  2. DIOVAN [Suspect]
     Active Substance: VALSARTAN
     Indication: HYPERTENSION
     Dosage: 160 MG, QD (NIGHT)
     Route: 065
  3. DIOVAN HCT [Suspect]
     Active Substance: HYDROCHLOROTHIAZIDE\VALSARTAN
     Dosage: 1 DF (VALSARTAN 160 MG, HYDROCHLOROTHIAZIDE 12.5 MG), QD (MORNING)
     Route: 065

REACTIONS (8)
  - Muscular weakness [Unknown]
  - Blood pressure decreased [Unknown]
  - Mobility decreased [Unknown]
  - Drug intolerance [Unknown]
  - Cold sweat [Unknown]
  - Anaemia [Unknown]
  - Fatigue [Unknown]
  - Death [Fatal]
